FAERS Safety Report 9804949 (Version 8)
Quarter: 2014Q2

REPORT INFORMATION
  Report Type: Spontaneous
  Country: US (occurrence: US)
  Receive Date: 20140109
  Receipt Date: 20140402
  Transmission Date: 20141212
  Serious: Yes (Hospitalization, Other)
  Sender: FDA-Public Use
  Company Number: US-BAXTER-2014BAX000442

PATIENT
  Age: 1 Year
  Sex: Female
  Weight: 7.6 kg

DRUGS (5)
  1. DIANEAL LOW CALCIUM [Suspect]
     Indication: RENAL FAILURE CHRONIC
     Dosage: 2 BAGS
     Route: 033
     Dates: start: 20130520
  2. DIANEAL LOW CALCIUM [Suspect]
     Indication: PERITONEAL DIALYSIS
     Route: 033
     Dates: start: 20130520
  3. DIANEAL LOW CALCIUM [Suspect]
     Route: 033
     Dates: start: 20140106
  4. DIANEAL LOW CALCIUM [Suspect]
     Route: 033
     Dates: start: 20140110, end: 20140110
  5. DIANEAL LOW CALCIUM [Suspect]
     Route: 033

REACTIONS (13)
  - Influenza [Recovering/Resolving]
  - Peritoneal dialysis complication [Recovering/Resolving]
  - Pulmonary oedema [Recovering/Resolving]
  - Fistula [Recovered/Resolved]
  - Respiratory arrest [Recovered/Resolved]
  - Laboratory test abnormal [Unknown]
  - Pleural effusion [Recovered/Resolved]
  - Respiratory tract infection [Unknown]
  - Oxygen saturation decreased [Recovered/Resolved]
  - Condition aggravated [Not Recovered/Not Resolved]
  - Device related infection [Unknown]
  - Diarrhoea [Not Recovered/Not Resolved]
  - Vomiting [Not Recovered/Not Resolved]
